FAERS Safety Report 5749194-6 (Version None)
Quarter: 2008Q2

REPORT INFORMATION
  Report Type: 
  Country: None (occurrence: None)
  Receive Date: 20080527
  Receipt Date: 20080515
  Transmission Date: 20081010
  Serious: Yes (Other)
  Sender: FDA-Public Use
  Company Number: US-ROCHE-564809

PATIENT
  Sex: Female

DRUGS (5)
  1. PEG-INTERFERON A-2A (RO 25-8310) [Suspect]
     Route: 065
     Dates: start: 20080430
  2. RIBAVIRIN [Suspect]
     Route: 065
     Dates: start: 20080430
  3. PROZAC [Concomitant]
     Indication: DEPRESSION
  4. VISTARIL [Concomitant]
  5. DALMANE [Concomitant]

REACTIONS (6)
  - BACK PAIN [None]
  - CATARACT [None]
  - HYPERHIDROSIS [None]
  - INFLUENZA LIKE ILLNESS [None]
  - INSOMNIA [None]
  - VISION BLURRED [None]
